FAERS Safety Report 8334376-X (Version None)
Quarter: 2012Q2

REPORT INFORMATION
  Report Type: 
  Country: None (occurrence: None)
  Receive Date: 20120503
  Receipt Date: 20120420
  Transmission Date: 20120825
  Serious: Yes (Hospitalization, Other)
  Sender: FDA-Public Use
  Company Number: IT-ELI_LILLY_AND_COMPANY-IT201204006422

PATIENT
  Sex: Male

DRUGS (6)
  1. ALIMTA [Suspect]
     Indication: NON-SMALL CELL LUNG CANCER STAGE IV
     Dosage: 900 MG, CYCLE
     Route: 042
     Dates: start: 20120328, end: 20120328
  2. FOLIC ACID [Concomitant]
  3. OXYCODONE HCL [Concomitant]
     Indication: PAIN
     Dosage: 20 MG, UNKNOWN
  4. DOBETIN [Concomitant]
  5. ACETAMINOPHEN [Concomitant]
     Dosage: 1000 MG, UNKNOWN
  6. CORTISONE ACETATE [Concomitant]

REACTIONS (6)
  - TRANSMISSION OF AN INFECTIOUS AGENT VIA A MEDICINAL PRODUCT [None]
  - INFECTION [None]
  - INTERSTITIAL LUNG DISEASE [None]
  - PYREXIA [None]
  - NEUTROPENIA [None]
  - ASTHENIA [None]
